FAERS Safety Report 8850093 (Version 2)
Quarter: 2012Q4

REPORT INFORMATION
  Report Type: 
  Country: US (occurrence: US)
  Receive Date: 20121019
  Receipt Date: 20121126
  Transmission Date: 20130627
  Serious: Yes (Disabling)
  Sender: FDA-Public Use
  Company Number: US-CELGENEUS-163-21880-12101971

PATIENT
  Sex: Male
  Weight: 78.09 kg

DRUGS (17)
  1. REVLIMID [Suspect]
     Indication: MULTIPLE MYELOMA
     Dosage: 25 Milligram
     Route: 048
     Dates: start: 200804
  2. REVLIMID [Suspect]
     Dosage: 15-25mg
     Route: 048
     Dates: start: 200807
  3. REVLIMID [Suspect]
     Dosage: 10mg-15mg
     Route: 048
     Dates: start: 200904
  4. REVLIMID [Suspect]
     Dosage: 10 Milligram
     Route: 048
     Dates: start: 200909
  5. REVLIMID [Suspect]
     Route: 048
     Dates: start: 201004
  6. ALENDRONATE SODIUM [Concomitant]
     Indication: DRUG USE FOR UNKNOWN INDICATION
     Route: 065
  7. CENTRUM [Concomitant]
     Indication: DRUG USE FOR UNKNOWN INDICATION
     Route: 065
  8. COUMADIN [Concomitant]
     Indication: DRUG USE FOR UNKNOWN INDICATION
     Dosage: 1 Milligram
     Route: 048
  9. FLUTICASONE [Concomitant]
     Indication: DRUG USE FOR UNKNOWN INDICATION
     Route: 065
  10. IMODIUM A-D [Concomitant]
     Indication: DRUG USE FOR UNKNOWN INDICATION
     Dosage: 2 Milligram
     Route: 048
  11. LORAZEPAM [Concomitant]
     Indication: DRUG USE FOR UNKNOWN INDICATION
     Dosage: .5 Milligram
     Route: 048
  12. PREVACID [Concomitant]
     Indication: DRUG USE FOR UNKNOWN INDICATION
     Dosage: 15 Milligram
     Route: 048
  13. TEMAZEPAM [Concomitant]
     Indication: DRUG USE FOR UNKNOWN INDICATION
     Dosage: 30 Milligram
     Route: 048
  14. VITAMIN B COMPLEX [Concomitant]
     Indication: DRUG USE FOR UNKNOWN INDICATION
     Dosage: 100-2mg
     Route: 065
  15. VITAMIN B12 [Concomitant]
     Indication: DRUG USE FOR UNKNOWN INDICATION
     Dosage: 1000 Microgram
     Route: 065
  16. VITAMIN D [Concomitant]
     Indication: DRUG USE FOR UNKNOWN INDICATION
     Route: 065
  17. FRAGMIN [Concomitant]
     Indication: DRUG USE FOR UNKNOWN INDICATION
     Route: 065
     Dates: start: 200907

REACTIONS (3)
  - Renal disorder [Unknown]
  - Red blood cell count decreased [Unknown]
  - Blood creatinine increased [Unknown]
